FAERS Safety Report 4337755-0 (Version None)
Quarter: 2004Q2

REPORT INFORMATION
  Report Type: 
  Country: None (occurrence: None)
  Receive Date: 20040408
  Receipt Date: 20040401
  Transmission Date: 20050107
  Serious: No
  Sender: FDA-Public Use
  Company Number: 2004AC00060

PATIENT
  Age: 72 Year
  Sex: Male

DRUGS (3)
  1. LIDOCAINE 1% [Suspect]
     Indication: CYSTITIS
     Dosage: 100 ML DAILY IB
  2. EPINEPHRINE [Suspect]
     Indication: CYSTITIS
     Dosage: 2 ML DAILY IB
  3. DEXAMETHASONE [Suspect]
     Indication: CYSTITIS
     Dosage: 10 ML DAILY IB

REACTIONS (8)
  - BLADDER DISORDER [None]
  - CIRCULATORY COLLAPSE [None]
  - DISEASE RECURRENCE [None]
  - DYSURIA [None]
  - MICTURITION URGENCY [None]
  - POLLAKIURIA [None]
  - TACHYARRHYTHMIA [None]
  - TRANSIENT ISCHAEMIC ATTACK [None]
